FAERS Safety Report 6748705-1 (Version None)
Quarter: 2010Q2

REPORT INFORMATION
  Report Type: 
  Country: None (occurrence: None)
  Receive Date: 20100601
  Receipt Date: 20100517
  Transmission Date: 20101027
  Serious: Yes (Other)
  Sender: FDA-Public Use
  Company Number: PHFR2010GB00699

PATIENT

DRUGS (1)
  1. FEMARA [Suspect]

REACTIONS (2)
  - CONFUSIONAL STATE [None]
  - DYSPHAGIA [None]
